FAERS Safety Report 8054193-8 (Version None)
Quarter: 2012Q1

REPORT INFORMATION
  Report Type: 
  Country: None (occurrence: None)
  Receive Date: 20120118
  Receipt Date: 20120116
  Transmission Date: 20120608
  Serious: Yes (Death)
  Sender: FDA-Public Use
  Company Number: CA-ROCHE-765374

PATIENT
  Sex: Female
  Weight: 95 kg

DRUGS (18)
  1. ZOPICLONE [Concomitant]
  2. CALCIUM [Concomitant]
  3. PREDNISONE [Concomitant]
  4. NITROGLYCERIN SPRAY [Concomitant]
  5. NAPROXEN [Concomitant]
     Dosage: DRUG NAME REPORTED AS NAPROXYEN.
     Route: 065
  6. PREDNISONE [Concomitant]
  7. LEVOTHYROXINE SODIUM [Concomitant]
  8. VITAMIN D [Concomitant]
  9. ACTEMRA [Suspect]
     Indication: RHEUMATOID ARTHRITIS
     Dosage: FORM : LIQUID, LAST DOSE PRIOR TO SAE : 03 MAR 2011,FREQ:Q4S,PERMANENTLY DISCONTINUED:11MAR2011
     Route: 042
     Dates: start: 20091209, end: 20110311
  10. PLACEBO [Suspect]
     Indication: RHEUMATOID ARTHRITIS
     Dosage: FREQUENCY: QS,PERMANENTLY DISCONTINUED:11MAR2011
     Route: 048
     Dates: start: 20091209, end: 20110311
  11. HYDROCHLOROTHIAZIDE [Concomitant]
  12. FOLIC ACID [Concomitant]
     Dosage: DOSE: 5 MG QS.
  13. RAMIPRIL [Concomitant]
     Dates: start: 20100315, end: 20100315
  14. ASPIRIN [Concomitant]
  15. LIPITOR [Concomitant]
  16. METOPROLOL [Concomitant]
  17. PLAVIX [Concomitant]
  18. RAMIPRIL [Concomitant]

REACTIONS (1)
  - METASTATIC NEOPLASM [None]
